FAERS Safety Report 9420153 (Version 2)
Quarter: 2013Q4

REPORT INFORMATION
  Report Type: Spontaneous
  Country: GB (occurrence: GB)
  Receive Date: 20130725
  Receipt Date: 20131104
  Transmission Date: 20140711
  Serious: Yes (Other)
  Sender: FDA-Public Use
  Company Number: GB-TEVA-419599ISR

PATIENT
  Age: 61 Year
  Sex: Female
  Weight: 166 kg

DRUGS (10)
  1. CITALOPRAM [Suspect]
     Indication: DEPRESSION
     Route: 048
     Dates: start: 20130620, end: 20130622
  2. ESTRADIOL [Concomitant]
  3. LEVOTHYROXINE SODIUM [Concomitant]
  4. FLIXONASE AQUEOUS [Concomitant]
  5. COD LIVER OIL [Concomitant]
  6. PROCHLORPERAZINE MALEATE [Concomitant]
  7. OMEPRAZOLE [Concomitant]
  8. MONTELUKAST [Concomitant]
  9. SALBUTAMOL [Concomitant]
  10. SYMBICORT [Concomitant]

REACTIONS (5)
  - Psychomotor hyperactivity [Recovering/Resolving]
  - Insomnia [Recovering/Resolving]
  - Speech disorder [Recovering/Resolving]
  - Fatigue [Unknown]
  - Restlessness [Unknown]
